FAERS Safety Report 11561275 (Version 1)
Quarter: 2015Q3

REPORT INFORMATION
  Report Type: Spontaneous
  Country: LT (occurrence: LT)
  Receive Date: 20150928
  Receipt Date: 20150928
  Transmission Date: 20151125
  Serious: Yes (Disabling)
  Sender: FDA-Public Use
  Company Number: LT-JNJFOC-20150913521

PATIENT
  Age: 21 Year
  Sex: Male
  Weight: 77 kg

DRUGS (3)
  1. RISPOLET [Suspect]
     Active Substance: RISPERIDONE
     Indication: DEPRESSION
     Route: 048
     Dates: start: 20141107, end: 20141215
  2. PARKOPAN [Suspect]
     Active Substance: TRIHEXYPHENIDYL HYDROCHLORIDE
     Indication: DEPRESSION
     Route: 065
     Dates: start: 20141110, end: 20141215
  3. CIPRALEX [Suspect]
     Active Substance: ESCITALOPRAM OXALATE
     Indication: DEPRESSION
     Route: 065
     Dates: start: 20141107, end: 20141220

REACTIONS (6)
  - Gynaecomastia [Not Recovered/Not Resolved]
  - Neuropathy peripheral [Recovering/Resolving]
  - Product use issue [Unknown]
  - Weight increased [Not Recovered/Not Resolved]
  - Sexual dysfunction [Not Recovered/Not Resolved]
  - Dystonia [Recovering/Resolving]

NARRATIVE: CASE EVENT DATE: 201411
